FAERS Safety Report 16861463 (Version 3)
Quarter: 2024Q4

REPORT INFORMATION
  Report Type: Spontaneous
  Country: CZ (occurrence: CZ)
  Receive Date: 20190927
  Receipt Date: 20241219
  Transmission Date: 20250115
  Serious: Yes (Other)
  Sender: MYLAN
  Company Number: CZ-NOVPHSZ-PHHY2019CZ103101

PATIENT
  Age: 80 Year
  Sex: Female

DRUGS (5)
  1. PACLITAXEL [Suspect]
     Active Substance: PACLITAXEL
     Indication: Breast cancer
     Dosage: UNK, WEEKLY REGIME WAS INITIATED
     Route: 065
  2. DOCETAXEL [Suspect]
     Active Substance: DOCETAXEL
     Indication: Invasive lobular breast carcinoma
     Dosage: UNK, CYCLE, DOSE REDUCED AND SUBSEQUENTLY WITHDRAWN, 3 CYCLES
     Route: 042
     Dates: start: 2016
  3. INSULIN NOS [Concomitant]
     Active Substance: INSULIN NOS
     Indication: Diabetes mellitus
     Dosage: UNK
     Route: 065
  4. PERTUZUMAB [Concomitant]
     Active Substance: PERTUZUMAB
     Indication: Invasive lobular breast carcinoma
     Dosage: UNK, CYCLE
     Route: 065
     Dates: start: 2016
  5. TRASTUZUMAB [Concomitant]
     Active Substance: TRASTUZUMAB
     Indication: Invasive lobular breast carcinoma
     Dosage: UNK, CYCLE
     Route: 065
     Dates: start: 2016

REACTIONS (3)
  - Diabetic metabolic decompensation [Recovering/Resolving]
  - Metastases to lung [Recovered/Resolved]
  - Diarrhoea [Recovered/Resolved]

NARRATIVE: CASE EVENT DATE: 20160101
